FAERS Safety Report 24939703 (Version 1)
Quarter: 2025Q1

REPORT INFORMATION
  Report Type: Spontaneous
  Country: US (occurrence: US)
  Receive Date: 20250207
  Receipt Date: 20250207
  Transmission Date: 20250409
  Serious: No
  Sender: SANOFI AVENTIS
  Company Number: US-SA-2025SA034991

PATIENT
  Age: 4 Year
  Sex: Female
  Weight: 22 kg

DRUGS (1)
  1. DUPIXENT [Suspect]
     Active Substance: DUPILUMAB
     Indication: Dermatitis atopic
     Dosage: 200 MG, Q4W
     Route: 058

REACTIONS (7)
  - Erythema of eyelid [Unknown]
  - Swelling of eyelid [Unknown]
  - Eczema [Unknown]
  - Therapeutic response shortened [Unknown]
  - Pruritus [Unknown]
  - Dry skin [Unknown]
  - Incorrect dose administered [Unknown]

NARRATIVE: CASE EVENT DATE: 20250101
